FAERS Safety Report 25831206 (Version 1)
Quarter: 2025Q3

REPORT INFORMATION
  Report Type: Spontaneous
  Country: KZ (occurrence: KZ)
  Receive Date: 20250922
  Receipt Date: 20250922
  Transmission Date: 20251020
  Serious: Yes (Other)
  Sender: INCYTE
  Company Number: KZ-002147023-NVSC2025KZ143344

PATIENT
  Age: 48 Year

DRUGS (2)
  1. RUXOLITINIB [Suspect]
     Active Substance: RUXOLITINIB
     Indication: Myelofibrosis
     Dosage: 20 MG, BID
     Route: 065
  2. RUXOLITINIB [Suspect]
     Active Substance: RUXOLITINIB
     Dosage: 15 MG, BID
     Route: 065

REACTIONS (7)
  - Cholecystitis [Unknown]
  - Pancreatitis [Unknown]
  - Hepatic steatosis [Unknown]
  - Pyelonephritis [Unknown]
  - White blood cell count increased [Unknown]
  - Renal disorder [Unknown]
  - Splenomegaly [Unknown]
